FAERS Safety Report 14719215 (Version 2)
Quarter: 2018Q2

REPORT INFORMATION
  Report Type: Report from Study
  Country: GB (occurrence: GB)
  Receive Date: 20180405
  Receipt Date: 20180517
  Transmission Date: 20180711
  Serious: Yes (Death, Hospitalization)
  Sender: FDA-Public Use
  Company Number: GB-ROCHE-668544

PATIENT
  Age: 79 Year
  Sex: Female
  Weight: 66 kg

DRUGS (4)
  1. RITUXIMAB. [Suspect]
     Active Substance: RITUXIMAB
     Indication: RHEUMATOID ARTHRITIS
     Route: 042
     Dates: start: 20070828, end: 20090223
  2. METHOTREXATE. [Concomitant]
     Active Substance: METHOTREXATE
     Route: 065
     Dates: start: 20040715, end: 20070611
  3. BRUFEN RETARD [Concomitant]
     Active Substance: IBUPROFEN
     Dosage: REPORTED AS BASELINE DRUG AT 22 SEPT 2003
     Route: 065
  4. PARACETAMOL [Concomitant]
     Active Substance: ACETAMINOPHEN
     Dosage: REPORTED AS BASELINE DRUG AT 22 SEPT 2003
     Route: 065

REACTIONS (4)
  - Squamous cell carcinoma of the oral cavity [Fatal]
  - Somnolence [Fatal]
  - General physical health deterioration [Fatal]
  - Skin cancer [Recovered/Resolved]

NARRATIVE: CASE EVENT DATE: 20080130
